FAERS Safety Report 9103574 (Version 1)
Quarter: 2013Q1

REPORT INFORMATION
  Report Type: Spontaneous
  Country: GB (occurrence: GB)
  Receive Date: 20130219
  Receipt Date: 20130219
  Transmission Date: 20140127
  Serious: Yes (Other)
  Sender: FDA-Public Use
  Company Number: GB-GLAXOSMITHKLINE-B0867409A

PATIENT
  Age: 57 Year
  Sex: Male
  Weight: 116 kg

DRUGS (12)
  1. REQUIP [Suspect]
     Indication: RESTLESS LEGS SYNDROME
     Dosage: 4MG PER DAY
     Route: 048
     Dates: start: 20121001
  2. VENLAFAXINE [Concomitant]
     Indication: DEPRESSION
     Dosage: 150MG PER DAY
  3. PRAMIPEXOLE [Concomitant]
     Indication: RESTLESS LEGS SYNDROME
     Dosage: 176MCG PER DAY
  4. TELFAST [Concomitant]
  5. LOSARTAN [Concomitant]
  6. DOXAZOSIN [Concomitant]
  7. AMILORIDE [Concomitant]
  8. BETAHISTINE [Concomitant]
  9. SIMVASTATIN [Concomitant]
  10. METFORMIN [Concomitant]
  11. AVAMYS [Concomitant]
  12. VENTOLIN [Concomitant]

REACTIONS (6)
  - Depression [Unknown]
  - Pathological gambling [Unknown]
  - Sexual activity increased [Unknown]
  - Sinus congestion [Unknown]
  - Sleep disorder due to general medical condition, insomnia type [Unknown]
  - Binge eating [Unknown]
